FAERS Safety Report 25783850 (Version 1)
Quarter: 2025Q3

REPORT INFORMATION
  Report Type: Spontaneous
  Country: US (occurrence: US)
  Receive Date: 20250910
  Receipt Date: 20250910
  Transmission Date: 20251021
  Serious: No
  Sender: ROCHE
  Company Number: US-ROCHE-10000378453

PATIENT
  Sex: Female

DRUGS (1)
  1. ACTEMRA ACTPEN [Suspect]
     Active Substance: TOCILIZUMAB
     Indication: Product used for unknown indication
     Dosage: 162MG/0.9M
     Route: 058
     Dates: start: 202507

REACTIONS (3)
  - Rash erythematous [Unknown]
  - Rash pruritic [Unknown]
  - Rash [Unknown]
